FAERS Safety Report 14441408 (Version 1)
Quarter: 2018Q1

REPORT INFORMATION
  Report Type: Report from Study
  Country: JP (occurrence: JP)
  Receive Date: 20180125
  Receipt Date: 20180125
  Transmission Date: 20180509
  Serious: Yes (Death, Life-Threatening, Hospitalization, Other)
  Sender: FDA-Public Use
  Company Number: JP-DSJP-DSJ-2017-159858AA

PATIENT

DRUGS (12)
  1. FAMOTIDINE. [Concomitant]
     Active Substance: FAMOTIDINE
     Dosage: 20MG/DAY
     Route: 048
     Dates: end: 20170723
  2. GENINAX [Concomitant]
     Active Substance: GARENOXACIN MESYLATE
     Dosage: 200MG/DAY
     Route: 048
     Dates: start: 20170124, end: 20170128
  3. ALLOPURINOL. [Concomitant]
     Active Substance: ALLOPURINOL
     Dosage: 100MG/DAY
     Route: 048
     Dates: end: 20170723
  4. SUNRYTHM [Concomitant]
     Active Substance: PILSICAINIDE HYDROCHLORIDE
     Dosage: 150MG/DAY
     Route: 048
     Dates: start: 20151125, end: 20170723
  5. MEMARY [Concomitant]
     Active Substance: MEMANTINE HYDROCHLORIDE
     Dosage: 20MG/DAY
     Route: 048
     Dates: start: 20160210, end: 20170723
  6. REMINYL [Concomitant]
     Active Substance: GALANTAMINE
     Dosage: 16MG/DAY
     Route: 048
     Dates: end: 20170723
  7. EDOXABAN [Suspect]
     Active Substance: EDOXABAN TOSYLATE
     Indication: ATRIAL FIBRILLATION
     Dosage: 30 MG, QD
     Route: 048
     Dates: start: 20151028, end: 20161116
  8. PREDNISOLONE. [Concomitant]
     Active Substance: PREDNISOLONE
     Dosage: 2MG/DAY
     Route: 048
     Dates: end: 20170723
  9. AVAPRO [Concomitant]
     Active Substance: IRBESARTAN
     Dosage: 100MG/DAY
     Route: 048
     Dates: start: 20160406, end: 20170723
  10. PREDONINE                          /00016204/ [Concomitant]
     Active Substance: PREDNISOLONE ACETATE
     Dosage: 25MG/DAY
     Route: 048
     Dates: end: 20170723
  11. BISONO [Concomitant]
     Active Substance: BISOPROLOL
     Dosage: 8MG/DAY
     Route: 050
     Dates: start: 20151028, end: 20170723
  12. HERBESSER [Concomitant]
     Active Substance: DILTIAZEM HYDROCHLORIDE
     Dosage: 100MG/DAY
     Route: 048
     Dates: start: 20160210, end: 20170723

REACTIONS (5)
  - Cerebellar haemorrhage [Recovering/Resolving]
  - Pneumonia aspiration [Not Recovered/Not Resolved]
  - Pleurisy [Not Recovered/Not Resolved]
  - Epistaxis [Recovering/Resolving]
  - Atrial fibrillation [Fatal]

NARRATIVE: CASE EVENT DATE: 201611
